FAERS Safety Report 7358659-5 (Version None)
Quarter: 2011Q1

REPORT INFORMATION
  Report Type: 
  Country: None (occurrence: None)
  Receive Date: 20110317
  Receipt Date: 20110307
  Transmission Date: 20110831
  Serious: Yes (Hospitalization, Other)
  Sender: FDA-Public Use
  Company Number: US-CELGENEUS-163-21880-10120053

PATIENT
  Age: 82 Year
  Sex: Female
  Weight: 54.4 kg

DRUGS (4)
  1. REVLIMID [Suspect]
     Dosage: 10 MILLIGRAM
     Route: 048
     Dates: start: 20101111, end: 20101128
  2. EPOETIN ALFA [Suspect]
     Dosage: 60000 UNITS
     Route: 058
     Dates: start: 20101111, end: 20101124
  3. REVLIMID [Suspect]
     Dosage: 10 MILLIGRAM
     Route: 048
     Dates: start: 20100819
  4. EPOETIN ALFA [Suspect]
     Dosage: 60000 UNITS
     Route: 058
     Dates: start: 20100819

REACTIONS (2)
  - COLITIS ISCHAEMIC [None]
  - CARDIAC FAILURE CONGESTIVE [None]
